FAERS Safety Report 7599634-5 (Version None)
Quarter: 2011Q2

REPORT INFORMATION
  Report Type: 
  Country: None (occurrence: None)
  Receive Date: 20110621
  Receipt Date: 20110613
  Transmission Date: 20111010
  Serious: Yes (Hospitalization)
  Sender: FDA-Public Use
  Company Number: AEUSA201100142

PATIENT
  Age: 72 Year
  Sex: Female
  Weight: 84 kg

DRUGS (22)
  1. GAMUNEX [Suspect]
     Indication: CHRONIC INFLAMMATORY DEMYELINATING POLYRADICULONEUROPATHY
     Dosage: 33.3 GM;QD;IV
     Route: 042
     Dates: start: 20110501, end: 20110503
  2. MICARDIS [Concomitant]
  3. LEVOTHYROXINE SODIUM [Concomitant]
  4. PATANOL [Concomitant]
  5. CLARITIN [Concomitant]
  6. RESTASIS [Concomitant]
  7. ACIDOPHILUS [Concomitant]
  8. PREDNISONE [Concomitant]
  9. METHOTREXATE [Concomitant]
  10. FLONASE [Concomitant]
  11. FOLIC ACID [Concomitant]
  12. BENADRYL [Concomitant]
  13. PLAVIX [Concomitant]
  14. LOVAZA [Concomitant]
  15. GLUCOSAMINE W/METHYSULFONYLMETHANE [Concomitant]
  16. TYLENOL WITH CODEIN #3 [Concomitant]
  17. MIRALAX [Concomitant]
  18. ACETAMINOPHEN [Concomitant]
  19. LOPRESSOR [Concomitant]
  20. CALCIUM W/MAGNESIUM [Concomitant]
  21. NIFEDIPINE [Concomitant]
  22. POTASSIUM CHLORIDE [Concomitant]

REACTIONS (3)
  - MOTOR NEURONE DISEASE [None]
  - PULMONARY EMBOLISM [None]
  - AMYOTROPHIC LATERAL SCLEROSIS [None]
